FAERS Safety Report 5119557-0 (Version None)
Quarter: 2006Q3

REPORT INFORMATION
  Report Type: 
  Country: None (occurrence: None)
  Receive Date: 20060928
  Receipt Date: 20060920
  Transmission Date: 20061208
  Serious: Yes (Hospitalization)
  Sender: FDA-Public Use
  Company Number: 2006-05-05043

PATIENT
  Age: 56 Year
  Sex: Female

DRUGS (4)
  1. FLUOROURACIL [Suspect]
     Indication: CERVIX CARCINOMA
     Dosage: 500 MG/M2, 1/WEEKX 5 WEEKS, UNK
     Dates: start: 19890701
  2. FLUOROURACIL [Suspect]
     Indication: VULVAL CANCER
     Dosage: 500 MG/M2, 1/WEEKX 5 WEEKS, UNK
     Dates: start: 19890701
  3. CISPLATIN [Suspect]
     Indication: CERVIX CARCINOMA
     Dosage: 40 MG/M2, 1/WEEK X 5 WEEKS, UNK
     Dates: start: 19890701
  4. CISPLATIN [Suspect]
     Indication: VULVAL CANCER
     Dosage: 40 MG/M2, 1/WEEK X 5 WEEKS, UNK
     Dates: start: 19890701

REACTIONS (3)
  - NECROSIS [None]
  - OSTEOMYELITIS [None]
  - RADIATION INJURY [None]
